FAERS Safety Report 5487193-2 (Version None)
Quarter: 2007Q4

REPORT INFORMATION
  Report Type: 
  Country: None (occurrence: None)
  Receive Date: 20071016
  Receipt Date: 20071004
  Transmission Date: 20080405
  Serious: Yes (Hospitalization, Other)
  Sender: FDA-Public Use
  Company Number: US-ELI_LILLY_AND_COMPANY-US200709006902

PATIENT
  Sex: Female
  Weight: 126.98 kg

DRUGS (6)
  1. STRATTERA [Suspect]
     Indication: ANXIETY
     Dosage: 75 MG, UNK
     Dates: start: 20070626
  2. XANAX [Concomitant]
     Dosage: 1 MG, 4/D
  3. POTASSIUM CHLORIDE [Concomitant]
  4. PREVACID [Concomitant]
     Indication: GASTROOESOPHAGEAL REFLUX DISEASE
  5. LISINOPRIL [Concomitant]
     Indication: HYPERTENSION
     Dosage: 40 MG, UNK
  6. LASIX [Concomitant]
     Indication: FLUID RETENTION
     Dosage: 60 MG, UNK

REACTIONS (2)
  - LOSS OF CONSCIOUSNESS [None]
  - RENAL FAILURE [None]
